FAERS Safety Report 10183646 (Version 2)
Quarter: 2014Q2

REPORT INFORMATION
  Report Type: Report from Study
  Country: US (occurrence: US)
  Receive Date: 20140520
  Receipt Date: 20140520
  Transmission Date: 20141212
  Serious: Yes (Other)
  Sender: FDA-Public Use
  Company Number: US-CELGENEUS-163-10004-12010317

PATIENT
  Age: 40 Year
  Sex: Male
  Weight: 60.65 kg

DRUGS (7)
  1. CC-10004 [Suspect]
     Indication: PSORIATIC ARTHROPATHY
     Dosage: 40 MILLIGRAM
     Route: 048
     Dates: start: 20111228, end: 20120105
  2. VICODIN [Suspect]
     Indication: PSORIATIC ARTHROPATHY
     Route: 048
     Dates: start: 20111212
  3. VICODIN [Suspect]
     Indication: PAIN
  4. VITAMIN C [Concomitant]
     Indication: VIRAL INFECTION
     Dosage: 1000 MILLIGRAM
     Route: 048
     Dates: start: 20111221, end: 20111226
  5. NYQUIL [Concomitant]
     Indication: VIRAL INFECTION
     Route: 048
     Dates: start: 20111221, end: 20111226
  6. DAYQUIL [Concomitant]
     Indication: VIRAL INFECTION
     Route: 048
     Dates: start: 20111221, end: 20111226
  7. TYLENOL [Concomitant]
     Indication: PAIN
     Route: 065

REACTIONS (2)
  - Aspartate aminotransferase increased [Recovered/Resolved]
  - Alanine aminotransferase increased [Recovered/Resolved]
